FAERS Safety Report 5014027-2 (Version None)
Quarter: 2006Q2

REPORT INFORMATION
  Report Type: 
  Country: None (occurrence: None)
  Receive Date: 20060526
  Receipt Date: 20060526
  Transmission Date: 20061013
  Serious: Yes (Death)
  Sender: FDA-Public Use
  Company Number: None

PATIENT
  Age: 58 Year
  Sex: Female
  Weight: 84 kg

DRUGS (2)
  1. ACTIVASE [Suspect]
     Indication: CEREBROVASCULAR ACCIDENT
     Dosage: 9 MG  BOLUS  IV BOLUS;  81 MG  OVER 60 MINUTES  IV DRIP
     Route: 040
     Dates: start: 20060414, end: 20060414
  2. ACTIVASE [Suspect]
     Indication: CEREBROVASCULAR ACCIDENT
     Dosage: 9 MG  BOLUS  IV BOLUS;  81 MG  OVER 60 MINUTES  IV DRIP
     Route: 040
     Dates: start: 20060414, end: 20060414

REACTIONS (5)
  - CEREBRAL HAEMORRHAGE [None]
  - HEADACHE [None]
  - INFUSION RELATED REACTION [None]
  - SPEECH DISORDER [None]
  - SUBARACHNOID HAEMORRHAGE [None]
